FAERS Safety Report 15116177 (Version 2)
Quarter: 2018Q3

REPORT INFORMATION
  Report Type: Spontaneous
  Country: US (occurrence: US)
  Receive Date: 20180706
  Receipt Date: 20180720
  Transmission Date: 20181010
  Serious: No
  Sender: FDA-Public Use
  Company Number: US-BAUSCH-BL-2018-015239

PATIENT
  Age: 37 Year
  Sex: Female
  Weight: 65.38 kg

DRUGS (1)
  1. LUMIFY [Suspect]
     Active Substance: BRIMONIDINE TARTRATE
     Indication: OCULAR HYPERAEMIA
     Dosage: ONE DROP IN EACH EYE, SINGLE
     Route: 047
     Dates: start: 20180522, end: 20180522

REACTIONS (4)
  - Eye irritation [Recovered/Resolved]
  - Eye pain [Recovered/Resolved]
  - Ocular discomfort [Recovered/Resolved]
  - Eye discharge [Recovered/Resolved]

NARRATIVE: CASE EVENT DATE: 20180522
